FAERS Safety Report 22598302 (Version 2)
Quarter: 2023Q2

REPORT INFORMATION
  Report Type: Spontaneous
  Country: JP (occurrence: JP)
  Receive Date: 20230614
  Receipt Date: 20230619
  Transmission Date: 20230722
  Serious: Yes (Other)
  Sender: FDA-Public Use
  Company Number: JP-002147023-NVSC2023JP131889

PATIENT
  Age: 73 Year
  Sex: Male

DRUGS (5)
  1. ETOPOSIDE [Suspect]
     Active Substance: ETOPOSIDE
     Indication: Angiocentric lymphoma
     Dosage: 50 MG/M2, UNKNOWN
     Route: 065
  2. METHOTREXATE [Suspect]
     Active Substance: METHOTREXATE
     Indication: Angiocentric lymphoma
     Dosage: 1 G/M2 (DAY 1) (SMILE THERAPY)
     Route: 065
  3. DEXAMETHASONE [Suspect]
     Active Substance: DEXAMETHASONE
     Indication: Angiocentric lymphoma
     Dosage: 40 MG, UNKNOWN (40 MG/BODY)
     Route: 065
  4. IFOSFAMIDE [Suspect]
     Active Substance: IFOSFAMIDE
     Indication: Angiocentric lymphoma
     Dosage: 750 MG/M2, UNKNOWN (DAY 2-4)
     Route: 065
  5. ASPARAGINASE [Suspect]
     Active Substance: ASPARAGINASE
     Indication: Angiocentric lymphoma
     Dosage: 3000 U/M2
     Route: 065

REACTIONS (3)
  - Renal failure [Unknown]
  - Gastric ulcer haemorrhage [Unknown]
  - Decreased appetite [Unknown]
